FAERS Safety Report 4313955-0 (Version None)
Quarter: 2004Q1

REPORT INFORMATION
  Report Type: 
  Country: None (occurrence: None)
  Receive Date: 20040305
  Receipt Date: 20040220
  Transmission Date: 20041129
  Serious: Yes (Hospitalization)
  Sender: FDA-Public Use
  Company Number: 2004-112019-NL

PATIENT
  Age: 47 Year
  Sex: Female

DRUGS (14)
  1. DANAPAROID SODIUM [Suspect]
     Indication: DISSEMINATED INTRAVASCULAR COAGULATION
     Dosage: 1250 ANTI_XA QD/2500 ANTI_XA/1250 ANTI_XA QD INTRAVENOUS (NOS)
     Route: 042
     Dates: start: 20031109, end: 20031109
  2. DANAPAROID SODIUM [Suspect]
     Indication: DISSEMINATED INTRAVASCULAR COAGULATION
     Dosage: 1250 ANTI_XA QD/2500 ANTI_XA/1250 ANTI_XA QD INTRAVENOUS (NOS)
     Route: 042
     Dates: start: 20031110, end: 20031111
  3. DANAPAROID SODIUM [Suspect]
     Indication: DISSEMINATED INTRAVASCULAR COAGULATION
     Dosage: 1250 ANTI_XA QD/2500 ANTI_XA/1250 ANTI_XA QD INTRAVENOUS (NOS)
     Route: 042
     Dates: start: 20031112, end: 20031112
  4. GABEXATE MESILATE [Concomitant]
  5. PREDNISOLONE [Concomitant]
  6. FANGARD [Concomitant]
  7. TIENAM [Concomitant]
  8. VANCOMYCIN [Concomitant]
  9. INSULIN HUMAN [Concomitant]
  10. PREDOPA [Concomitant]
  11. RETAMEX [Concomitant]
  12. CYCLOSPORINE [Concomitant]
  13. AMPHOTERICIN B [Concomitant]
  14. CEFOZOFRAN HYDROCHLORIDE [Concomitant]

REACTIONS (3)
  - ANAEMIA [None]
  - BLOOD ALKALINE PHOSPHATASE INCREASED [None]
  - WHITE BLOOD CELL COUNT DECREASED [None]
